FAERS Safety Report 24050487 (Version 1)
Quarter: 2024Q3

REPORT INFORMATION
  Report Type: Spontaneous
  Country: PK (occurrence: PK)
  Receive Date: 20240704
  Receipt Date: 20240704
  Transmission Date: 20241017
  Serious: Yes (Death)
  Sender: NOVARTIS
  Company Number: PK-002147023-NVSC2024PK137924

PATIENT
  Age: 17 Year
  Sex: Male

DRUGS (1)
  1. IMATINIB [Suspect]
     Active Substance: IMATINIB
     Indication: Chronic myeloid leukaemia
     Dosage: 100 MG BD
     Route: 065

REACTIONS (1)
  - Blast crisis in myelogenous leukaemia [Fatal]
